FAERS Safety Report 24626781 (Version 2)
Quarter: 2024Q4

REPORT INFORMATION
  Report Type: Spontaneous
  Country: US (occurrence: US)
  Receive Date: 20241115
  Receipt Date: 20241115
  Transmission Date: 20250115
  Serious: No
  Sender: NOVO NORDISK
  Company Number: US-NOVOPROD-1169891

PATIENT
  Sex: Female

DRUGS (4)
  1. NOVOLOG [Suspect]
     Active Substance: INSULIN ASPART
     Indication: Type 2 diabetes mellitus
  2. NOVOLOG [Suspect]
     Active Substance: INSULIN ASPART
     Indication: Blood glucose increased
     Dosage: UNKNOWN
     Route: 058
     Dates: start: 2019
  3. NOVOLOG [Suspect]
     Active Substance: INSULIN ASPART
     Indication: Type 2 diabetes mellitus
  4. NOVOLOG [Suspect]
     Active Substance: INSULIN ASPART
     Indication: Blood glucose increased
     Dosage: 15 IU, TID
     Route: 058
     Dates: start: 2019

REACTIONS (1)
  - Back pain [Unknown]
